FAERS Safety Report 5734376-X (Version None)
Quarter: 2008Q2

REPORT INFORMATION
  Report Type: 
  Country: None (occurrence: None)
  Receive Date: 20080508
  Receipt Date: 20080508
  Transmission Date: 20081010
  Serious: Yes (Other)
  Sender: FDA-Public Use
  Company Number: None

PATIENT
  Sex: Female
  Weight: 68.0396 kg

DRUGS (1)
  1. CREST PRO-HEALTH RINSE [Suspect]
     Indication: DENTAL CARE
     Dosage: 1 CAPFUL
     Dates: start: 20070530, end: 20070531

REACTIONS (4)
  - DYSGEUSIA [None]
  - GLOSSODYNIA [None]
  - HYPOAESTHESIA ORAL [None]
  - PHARMACEUTICAL PRODUCT COMPLAINT [None]
